FAERS Safety Report 25549806 (Version 1)
Quarter: 2025Q3

REPORT INFORMATION
  Report Type: Spontaneous
  Country: KR (occurrence: KR)
  Receive Date: 20250714
  Receipt Date: 20250714
  Transmission Date: 20251020
  Serious: Yes (Other)
  Sender: UCB
  Company Number: KR-UCBSA-2025041746

PATIENT
  Sex: Female
  Weight: 38 kg

DRUGS (1)
  1. KEPPRA [Suspect]
     Active Substance: LEVETIRACETAM
     Indication: Seizure
     Dosage: 125 MILLIGRAM, 2X/DAY (BID)
     Dates: start: 20240727, end: 20240805

REACTIONS (2)
  - Thrombocytopenia [Recovered/Resolved]
  - Off label use [Unknown]

NARRATIVE: CASE EVENT DATE: 20240727
